FAERS Safety Report 8179552-4 (Version None)
Quarter: 2012Q1

REPORT INFORMATION
  Report Type: 
  Country: None (occurrence: None)
  Receive Date: 20120302
  Receipt Date: 20120223
  Transmission Date: 20120608
  Serious: No
  Sender: FDA-Public Use
  Company Number: US-PFIZER INC-2012052274

PATIENT
  Sex: Female
  Weight: 58.957 kg

DRUGS (1)
  1. FLAGYL [Suspect]
     Indication: VAGINITIS BACTERIAL
     Dosage: UNK
     Dates: start: 20111201, end: 20111201

REACTIONS (1)
  - HYPERSENSITIVITY [None]
